FAERS Safety Report 15775137 (Version 1)
Quarter: 2018Q4

REPORT INFORMATION
  Report Type: Report from Study
  Country: JP (occurrence: JP)
  Receive Date: 20181231
  Receipt Date: 20181231
  Transmission Date: 20190205
  Serious: Yes (Hospitalization)
  Sender: FDA-Public Use
  Company Number: JP-BEH-2018098016

PATIENT
  Age: 77 Year
  Sex: Female
  Weight: 47 kg

DRUGS (6)
  1. KAYTWO N [Concomitant]
     Active Substance: MENATETRENONE
     Indication: PROCOAGULANT THERAPY
     Dosage: 20MG, BID (Q12HRS)
     Route: 065
     Dates: start: 20180220, end: 20180220
  2. BIO-THREE [Concomitant]
     Active Substance: HERBALS
     Dosage: UNK
     Route: 048
     Dates: start: 20180221
  3. KAYTWO N [Concomitant]
     Active Substance: MENATETRENONE
     Indication: VITAMIN K
  4. BERIPLEX P/N [Suspect]
     Active Substance: COAGULATION FACTOR IX HUMAN\COAGULATION FACTOR VII HUMAN\COAGULATION FACTOR X HUMAN\PROTEIN C\PROTEIN S HUMAN\PROTHROMBIN
     Indication: THERAPEUTIC PROCEDURE
     Dosage: 1750 IU, UNK
     Route: 042
     Dates: start: 20180220
  5. WARFARIN                           /00014803/ [Concomitant]
     Active Substance: WARFARIN
     Indication: PROPHYLAXIS
     Dosage: 2.75 MG, UNK
     Route: 048
  6. WARFARIN                           /00014803/ [Concomitant]
     Active Substance: WARFARIN
     Indication: ANTICOAGULANT THERAPY
     Dosage: 1.75 MG, UNK
     Route: 048
     Dates: start: 20180227

REACTIONS (1)
  - Disseminated intravascular coagulation [Recovered/Resolved]

NARRATIVE: CASE EVENT DATE: 20180221
